FAERS Safety Report 24726588 (Version 1)
Quarter: 2024Q4

REPORT INFORMATION
  Report Type: Spontaneous
  Country: US (occurrence: US)
  Receive Date: 20241212
  Receipt Date: 20241212
  Transmission Date: 20250114
  Serious: No
  Sender: BAUSCH AND LOMB
  Company Number: US-BAUSCH-BL-2024-017383

PATIENT
  Sex: Female

DRUGS (1)
  1. IPRATROPIUM BROMIDE [Suspect]
     Active Substance: IPRATROPIUM BROMIDE
     Indication: Sinus congestion
     Dosage: 1 SPRAY IN EACH NOSTRIL ONCE DAILY
     Route: 045

REACTIONS (3)
  - Product packaging quantity issue [Unknown]
  - Wrong technique in product usage process [Unknown]
  - Therapeutic product effect decreased [Unknown]
